FAERS Safety Report 8010860-3 (Version None)
Quarter: 2011Q4

REPORT INFORMATION
  Report Type: 
  Country: None (occurrence: None)
  Receive Date: 20111228
  Receipt Date: 20111215
  Transmission Date: 20120403
  Serious: Yes (Other)
  Sender: FDA-Public Use
  Company Number: US-ELI_LILLY_AND_COMPANY-US201101006674

PATIENT
  Sex: Female

DRUGS (17)
  1. ACETAMINOPHEN AND HYDROCODONE BITARTRATE [Concomitant]
  2. DICYCLOMINE [Concomitant]
  3. ALBUTEROL [Concomitant]
  4. PREMARIN [Concomitant]
  5. ATROVENT [Concomitant]
  6. SUPER B COMPLEX [Concomitant]
  7. VITAMIN D [Concomitant]
     Dosage: 50000 IU, 3/W
  8. LOTREL [Concomitant]
  9. VITAMIN B-12 [Concomitant]
  10. FORTEO [Suspect]
     Indication: OSTEOPOROSIS
     Dosage: 20 UG, DAILY (1/D)
     Dates: start: 20110105
  11. ALBUTEROL SULFATE AND IPRATROPIUM BROMIDE [Concomitant]
  12. CENTRUM SILVER [Concomitant]
  13. VITAMIN C [Concomitant]
  14. VITAMIN E [Concomitant]
  15. ATENOLOL [Concomitant]
  16. CALCITRIOL [Concomitant]
  17. FORTEO [Suspect]
     Dosage: 20 UG, DAILY (1/D)
     Dates: end: 20111212

REACTIONS (5)
  - PANCREATIC CARCINOMA METASTATIC [None]
  - SOMNOLENCE [None]
  - ASTHENIA [None]
  - FATIGUE [None]
  - DRUG DOSE OMISSION [None]
